FAERS Safety Report 8767099 (Version 2)
Quarter: 2012Q4

REPORT INFORMATION
  Report Type: 
  Country: US (occurrence: US)
  Receive Date: 20120831
  Receipt Date: 20121005
  Transmission Date: 20130627
  Serious: Yes (Disabling, Other)
  Sender: FDA-Public Use
  Company Number: US-ELI_LILLY_AND_COMPANY-US201208008070

PATIENT
  Sex: Female

DRUGS (3)
  1. PROZAC [Suspect]
     Indication: DEPRESSION
     Dosage: 120 mg, qd
     Dates: start: 1982, end: 2007
  2. ATIVAN [Concomitant]
  3. SYNTHROID [Concomitant]

REACTIONS (5)
  - Road traffic accident [Unknown]
  - Sleep apnoea syndrome [Unknown]
  - Hypersensitivity [Unknown]
  - Overdose [Recovered/Resolved]
  - Sinus disorder [Unknown]
